FAERS Safety Report 14345569 (Version 1)
Quarter: 2018Q1

REPORT INFORMATION
  Report Type: Spontaneous
  Country: FR (occurrence: FR)
  Receive Date: 20180103
  Receipt Date: 20180103
  Transmission Date: 20180509
  Serious: Yes (Other)
  Sender: FDA-Public Use
  Company Number: FR-MERCK KGAA-2038195

PATIENT
  Age: 37 Year
  Sex: Female
  Weight: 96 kg

DRUGS (1)
  1. NOVOTHYROX [Suspect]
     Active Substance: LEVOTHYROXINE SODIUM
     Indication: HYPOTHYROIDISM
     Route: 048
     Dates: end: 20171007

REACTIONS (12)
  - Arthralgia [Unknown]
  - Fatigue [Unknown]
  - Confusional state [Unknown]
  - Headache [Unknown]
  - Weight increased [Unknown]
  - Disturbance in attention [Unknown]
  - Blood thyroid stimulating hormone normal [Unknown]
  - Aphasia [Unknown]
  - Diffuse alopecia [Unknown]
  - Irritability [Unknown]
  - Vertigo [Unknown]
  - Dry skin [Unknown]

NARRATIVE: CASE EVENT DATE: 201707
